FAERS Safety Report 7369095-X (Version None)
Quarter: 2011Q1

REPORT INFORMATION
  Report Type: 
  Country: None (occurrence: None)
  Receive Date: 20110323
  Receipt Date: 20110316
  Transmission Date: 20110831
  Serious: Yes (Other)
  Sender: FDA-Public Use
  Company Number: US-AMGEN-US361723

PATIENT
  Age: 50 Year
  Sex: Female
  Weight: 69.9 kg

DRUGS (3)
  1. NPLATE [Suspect]
     Dosage: UNK
     Dates: start: 20081006
  2. NPLATE [Suspect]
     Indication: IDIOPATHIC THROMBOCYTOPENIC PURPURA
     Dosage: 62 A?G, QWK
     Dates: start: 20080929, end: 20090521
  3. NPLATE [Suspect]
     Dosage: 373 A?G/KG, UNK
     Dates: end: 20090706

REACTIONS (2)
  - DRUG INEFFECTIVE [None]
  - THERAPEUTIC RESPONSE DECREASED [None]
